FAERS Safety Report 10436614 (Version 2)
Quarter: 2014Q4

REPORT INFORMATION
  Report Type: Spontaneous
  Country: CA (occurrence: None)
  Receive Date: 20140904
  Receipt Date: 20141118
  Transmission Date: 20150528
  Serious: Yes (Hospitalization)
  Sender: FDA-Public Use
  Company Number: 2014MPI01063

PATIENT
  Age: 36 Year
  Sex: Male
  Weight: 84 kg

DRUGS (38)
  1. DACARBAZINE. [Suspect]
     Active Substance: DACARBAZINE
     Indication: HODGKIN^S DISEASE
     Dosage: 788 UNK, UNK, INTRAVENOUS
     Route: 042
     Dates: start: 20140416, end: 20140805
  2. VITAMIN D (COLECALCIFEROL) [Concomitant]
  3. BUPROPION [Concomitant]
     Active Substance: BUPROPION
  4. DICLOFENAC (DICLOFENAC POTASSIUM) [Concomitant]
  5. LEVAQUIN [Concomitant]
     Active Substance: LEVOFLOXACIN
  6. BRENTUXIMAB VEDOTIN [Suspect]
     Active Substance: BRENTUXIMAB VEDOTIN
     Indication: HODGKIN^S DISEASE
     Route: 042
     Dates: start: 20140416, end: 20140805
  7. PREGABALIN. [Concomitant]
     Active Substance: PREGABALIN
  8. ESOMEPRAZOLE W/NAPROXEN (ESOMEPRAZOLE W/NAPROXEN) [Concomitant]
  9. CYCLOBENZAPRINE [Concomitant]
     Active Substance: CYCLOBENZAPRINE
  10. VANCOMYCIN (VANCOMYCIN HYDROCHLORIDE) [Concomitant]
     Active Substance: VANCOMYCIN
  11. MOMETASONE [Concomitant]
     Active Substance: MOMETASONE
  12. DOXORUBICIN [Suspect]
     Active Substance: DOXORUBICIN
     Indication: HODGKIN^S DISEASE
     Route: 042
     Dates: start: 20140416, end: 20140805
  13. ACETAMINOPHEN. [Concomitant]
     Active Substance: ACETAMINOPHEN
  14. MYCOPHENOLATE (MYCOPHENOLATE MOFETIL) (500 MILLIGRAM, UNKNOWN) [Concomitant]
     Active Substance: MYCOPHENOLIC ACID
  15. CELEBREX [Concomitant]
     Active Substance: CELECOXIB
  16. DULCOLAX (BISACODYL) [Concomitant]
     Active Substance: BISACODYL
  17. SENOKOT (SENNA ALEXANDRINA FRUIT) [Concomitant]
  18. DILAUDID [Concomitant]
     Active Substance: HYDROMORPHONE HYDROCHLORIDE
  19. VINBLASTINE [Suspect]
     Active Substance: VINBLASTINE
     Indication: HODGKIN^S DISEASE
     Dosage: 13 MG, UNK, INTRAVENOUS
     Route: 042
     Dates: start: 20140416, end: 20140805
  20. CODEINE (CODEINE PHOSPHATE HEMIHYDRATE) [Concomitant]
  21. NEUPOGEN (FILGRASTIM) [Concomitant]
     Active Substance: FILGRASTIM
  22. BRICANYL (TERBUTALINE SULFATE) [Concomitant]
  23. DOCUSATE SODIUM (DOCUSATE SODIUM) [Concomitant]
     Active Substance: DOCUSATE SODIUM
  24. DECADRON (DEXAMETHASONE ACETATE) [Concomitant]
  25. LACTULOSE. [Concomitant]
     Active Substance: LACTULOSE
  26. ENOXAPARIN [Concomitant]
     Active Substance: ENOXAPARIN
  27. CALCIUM (CALCIUM GLUCONATE) [Concomitant]
  28. LOSARTAN + HIDROCLOROTIAZIDA (HYDROCHLOROTHIAZIDE, LOSARTAN) [Concomitant]
  29. CITALOPRAM (CITALOPRAM HYDROCHLORIDE) [Concomitant]
  30. COLACE [Concomitant]
     Active Substance: DOCUSATE SODIUM
  31. BUDESONIDE. [Concomitant]
     Active Substance: BUDESONIDE
  32. PULMICORT TURBUHALER [Concomitant]
     Active Substance: BUDESONIDE
  33. PIPERACILLIN + TAZOBACTAM (PIPERACILLIN SODIUM, TAZOBACTAM SODIUM) [Concomitant]
  34. SYMBICORT [Concomitant]
     Active Substance: BUDESONIDE\FORMOTEROL FUMARATE DIHYDRATE
  35. NAPROXEN (NAPROXEN SODIUM) [Concomitant]
  36. ZOPICLONE [Concomitant]
     Active Substance: ZOPICLONE
  37. RIVOTRIL [Concomitant]
     Active Substance: CLONAZEPAM
  38. CLAVULIN (AMOXICILLIN SODIUM, CLAVULANATE POTASSIUM) [Concomitant]

REACTIONS (6)
  - Heart rate increased [None]
  - Respiratory failure [None]
  - Pneumocystis jirovecii pneumonia [None]
  - Atypical pneumonia [None]
  - Lung infiltration [None]
  - Toxicity to various agents [None]

NARRATIVE: CASE EVENT DATE: 20140819
